FAERS Safety Report 8273443-6 (Version None)
Quarter: 2012Q2

REPORT INFORMATION
  Report Type: 
  Country: None (occurrence: None)
  Receive Date: 20120411
  Receipt Date: 20120403
  Transmission Date: 20120825
  Serious: Yes (Hospitalization)
  Sender: FDA-Public Use
  Company Number: US-BAYER-2012-023913

PATIENT
  Age: 32 Year
  Sex: Female

DRUGS (11)
  1. YAZ [Suspect]
     Indication: MENSTRUAL CYCLE MANAGEMENT
  2. DROSPIRENONE AND ETHINYL ESTRADIOL [Suspect]
     Indication: MENSTRUAL CYCLE MANAGEMENT
  3. CIPROFLOXACIN HYDROCHLORIDE [Concomitant]
     Dosage: 750 MG, UNK
     Route: 048
     Dates: start: 20101208
  4. DESOGESTREL AND ETHINYL ESTRADIOL [Concomitant]
     Dosage: UNK
     Dates: start: 20100927, end: 20101117
  5. YAZ [Suspect]
     Indication: CONTRACEPTION
     Dosage: UNK
     Dates: start: 20040801, end: 20100901
  6. LEVAQUIN [Concomitant]
     Indication: PNEUMONIA
     Dosage: 750 MG, QD
     Route: 048
  7. YASMIN [Suspect]
     Indication: CONTRACEPTION
     Dosage: UNK
     Dates: start: 20040801, end: 20100901
  8. MUCINEX [Concomitant]
     Route: 048
  9. YASMIN [Suspect]
     Indication: MENSTRUAL CYCLE MANAGEMENT
  10. DROSPIRENONE AND ETHINYL ESTRADIOL [Suspect]
     Indication: CONTRACEPTION
     Dosage: UNK
     Dates: start: 20040801, end: 20100901
  11. TESSALON [Concomitant]
     Indication: COUGH
     Dosage: 200 MG, TID
     Route: 048
     Dates: start: 20101208

REACTIONS (7)
  - INJURY [None]
  - ANXIETY [None]
  - PAIN [None]
  - DEEP VEIN THROMBOSIS [None]
  - GENERAL PHYSICAL HEALTH DETERIORATION [None]
  - EMOTIONAL DISTRESS [None]
  - PULMONARY EMBOLISM [None]
